FAERS Safety Report 5161694-9 (Version None)
Quarter: 2006Q4

REPORT INFORMATION
  Report Type: 
  Country: None (occurrence: None)
  Receive Date: 20061130
  Receipt Date: 20060801
  Transmission Date: 20070319
  Serious: No
  Sender: FDA-Public Use
  Company Number: US-BRISTOL-MYERS SQUIBB COMPANY-13462254

PATIENT
  Age: 45 Year
  Sex: Female
  Weight: 62 kg

DRUGS (6)
  1. GLUCOPHAGE XR [Suspect]
     Indication: DIABETES MELLITUS MANAGEMENT
     Route: 048
  2. MECLIZINE [Concomitant]
  3. LORAZEPAM [Concomitant]
  4. LISINOPRIL [Concomitant]
  5. SUDAFED 12 HOUR [Concomitant]
  6. ANTACID TAB [Concomitant]

REACTIONS (1)
  - BLOOD GLUCOSE INCREASED [None]
